FAERS Safety Report 19320845 (Version 1)
Quarter: 2021Q2

REPORT INFORMATION
  Report Type: Spontaneous
  Country: US (occurrence: US)
  Receive Date: 20210527
  Receipt Date: 20210527
  Transmission Date: 20210717
  Serious: Yes (Hospitalization)
  Sender: FDA-Public Use
  Company Number: US-TEVA-2021-US-1914988

PATIENT
  Age: 78 Year
  Sex: Male

DRUGS (1)
  1. CLONAZEPAM. [Suspect]
     Active Substance: CLONAZEPAM
     Indication: GENERALISED ANXIETY DISORDER
     Route: 065

REACTIONS (3)
  - Product supply issue [Unknown]
  - Catatonia [Recovering/Resolving]
  - Withdrawal syndrome [Recovering/Resolving]
